FAERS Safety Report 4635171-5 (Version None)
Quarter: 2005Q2

REPORT INFORMATION
  Report Type: 
  Country: None (occurrence: None)
  Receive Date: 20050414
  Receipt Date: 20050407
  Transmission Date: 20051028
  Serious: Yes (Hospitalization)
  Sender: FDA-Public Use
  Company Number: FR-GLAXOSMITHKLINE-B0377671A

PATIENT
  Age: 91 Year
  Sex: Female

DRUGS (9)
  1. AUGMENTIN [Suspect]
     Route: 065
     Dates: start: 20050219, end: 20050225
  2. ROCEPHIN [Suspect]
     Route: 030
     Dates: start: 20050225, end: 20050307
  3. ISOPTIN [Concomitant]
     Route: 048
  4. LEVOTHYROXINE SODIUM [Concomitant]
     Route: 048
  5. EUPANTOL [Concomitant]
     Route: 065
  6. ZOLOFT [Concomitant]
     Route: 048
  7. CORTICOSTEROIDS [Concomitant]
     Dosage: 60MG PER DAY
     Route: 065
  8. AEROSOL [Concomitant]
     Route: 055
  9. PHYSIOTHERAPY [Concomitant]

REACTIONS (5)
  - ACUTE RESPIRATORY FAILURE [None]
  - AGRANULOCYTOSIS [None]
  - BLOOD PRESSURE DECREASED [None]
  - CONFUSIONAL STATE [None]
  - PYREXIA [None]
